FAERS Safety Report 22686010 (Version 2)
Quarter: 2024Q1

REPORT INFORMATION
  Report Type: Spontaneous
  Country: ES (occurrence: ES)
  Receive Date: 20230710
  Receipt Date: 20240201
  Transmission Date: 20240410
  Serious: Yes (Hospitalization)
  Sender: FDA-Public Use
  Company Number: None

PATIENT
  Age: 82 Year
  Sex: Female

DRUGS (3)
  1. AMLODIPINE [Suspect]
     Active Substance: AMLODIPINE BESYLATE
     Indication: Hypertension
     Dosage: DOSAGE TEXT: ONE TABLET AT NIGHT
     Route: 048
     Dates: start: 20230421
  2. ENALAPRIL [Suspect]
     Active Substance: ENALAPRIL
     Indication: Hypertension
     Route: 048
     Dates: start: 20220427
  3. ENALAPRIL [Suspect]
     Active Substance: ENALAPRIL
     Indication: Hypertension
     Dosage: DOSAGE TEXT: ONE TABLET IN THE MORNING
     Route: 048
     Dates: start: 20180724, end: 20220427

REACTIONS (3)
  - Coagulopathy [Recovering/Resolving]
  - Hyperbilirubinaemia [Recovering/Resolving]
  - Hepatocellular injury [Recovering/Resolving]

NARRATIVE: CASE EVENT DATE: 20230503
